FAERS Safety Report 18013418 (Version 1)
Quarter: 2020Q3

REPORT INFORMATION
  Report Type: Spontaneous
  Country: US (occurrence: US)
  Receive Date: 20200710
  Receipt Date: 20200710
  Transmission Date: 20201103
  Serious: Yes (Life-Threatening, Hospitalization, Disabling, Other)
  Sender: FDA-Public Use
  Company Number: None

PATIENT
  Age: 79 Year
  Sex: Female
  Weight: 57.15 kg

DRUGS (10)
  1. PIOGLITAZONE HCL 30 MG TABLET: ROUND WHITE 7272/TEVA [Suspect]
     Active Substance: PIOGLITAZONE HYDROCHLORIDE
     Indication: DIABETES MELLITUS
     Dosage: ?          QUANTITY:30 TABLET(S);?
     Route: 048
     Dates: start: 20200520, end: 20200701
  2. ATORVASTATIN [Concomitant]
     Active Substance: ATORVASTATIN
  3. COENZYME Q10 [Concomitant]
     Active Substance: DIETARY SUPPLEMENT\UBIDECARENONE
  4. MULTIVITAMIN [Concomitant]
     Active Substance: VITAMINS
  5. CALCIUM [Concomitant]
     Active Substance: CALCIUM
  6. METFORMIN [Concomitant]
     Active Substance: METFORMIN HYDROCHLORIDE
  7. METOPROLOL ER [Concomitant]
     Active Substance: METOPROLOL SUCCINATE
  8. OLMESARTAN [Concomitant]
     Active Substance: OLMESARTAN
  9. VITAMIN D3 [Concomitant]
     Active Substance: CHOLECALCIFEROL
  10. FISH OIL CAPSULES [Concomitant]

REACTIONS (8)
  - Retroperitoneal lymphadenopathy [None]
  - Abdominal discomfort [None]
  - Abdominal distension [None]
  - Back pain [None]
  - Pancreatitis [None]
  - Haemorrhagic necrotic pancreatitis [None]
  - Splenic vein occlusion [None]
  - Peripancreatic fluid collection [None]

NARRATIVE: CASE EVENT DATE: 20200625
